FAERS Safety Report 8878985 (Version 1)
Quarter: 2012Q4

REPORT INFORMATION
  Report Type: 
  Country: US (occurrence: US)
  Receive Date: 20121026
  Receipt Date: 20121026
  Transmission Date: 20130627
  Serious: No
  Sender: FDA-Public Use
  Company Number: US-ASTRAZENECA-2009SE18095

PATIENT
  Age: 25365 Day
  Sex: Female
  Weight: 70.3 kg

DRUGS (5)
  1. CRESTOR [Suspect]
     Indication: BLOOD CHOLESTEROL
     Route: 048
     Dates: start: 20080909
  2. XANAX [Concomitant]
     Indication: MYALGIA
  3. XANAX [Concomitant]
     Indication: ANXIETY
  4. ASA [Concomitant]
     Indication: CARDIOVASCULAR EVENT PROPHYLAXIS
  5. FLEXERIL [Concomitant]
     Indication: FIBROMYALGIA

REACTIONS (4)
  - Mental impairment [Unknown]
  - Myalgia [Unknown]
  - Amnesia [Unknown]
  - Off label use [Unknown]
